FAERS Safety Report 21531399 (Version 2)
Quarter: 2022Q4

REPORT INFORMATION
  Report Type: Report from Study
  Country: ES (occurrence: ES)
  Receive Date: 20221031
  Receipt Date: 20221107
  Transmission Date: 20230113
  Serious: Yes (Hospitalization, Other)
  Sender: FDA-Public Use
  Company Number: ES-BRISTOL-MYERS SQUIBB COMPANY-BMS-2022-019156

PATIENT
  Age: 62 Year
  Sex: Male
  Weight: 87 kg

DRUGS (2)
  1. IPILIMUMAB [Suspect]
     Active Substance: IPILIMUMAB
     Indication: Colorectal cancer metastatic
     Dosage: LAST DOSE ON 24-FEB-2022 (87 MG)
     Route: 042
     Dates: start: 20211230
  2. TRAMETINIB [Suspect]
     Active Substance: TRAMETINIB
     Indication: Colorectal cancer metastatic
     Dosage: LAST DOSE ON 23-MAR-2022 (1.5 MG)
     Route: 048
     Dates: start: 20211230

REACTIONS (2)
  - Ascites [Recovered/Resolved]
  - Hypertransaminasaemia [Recovered/Resolved]

NARRATIVE: CASE EVENT DATE: 20220203
